FAERS Safety Report 12145518 (Version 1)
Quarter: 2016Q1

REPORT INFORMATION
  Report Type: Spontaneous
  Country: US (occurrence: None)
  Receive Date: 20160303
  Receipt Date: 20160303
  Transmission Date: 20160526
  Serious: Yes (Hospitalization)
  Sender: FDA-Public Use
  Company Number: None

PATIENT
  Age: 34 Year
  Sex: Male

DRUGS (1)
  1. ABACAVIR/DOLUTEGRAVIR/LAMIVUDINE [Suspect]
     Active Substance: ABACAVIR SULFATE\DOLUTEGRAVIR SODIUM\LAMIVUDINE
     Indication: HIV INFECTION
     Dosage: 1 TAB EVERY DAY PO
     Route: 048
     Dates: start: 20150721, end: 20150921

REACTIONS (4)
  - Nausea [None]
  - Abdominal discomfort [None]
  - Irritable bowel syndrome [None]
  - Vomiting [None]

NARRATIVE: CASE EVENT DATE: 20150921
